FAERS Safety Report 9891046 (Version 1)
Quarter: 2014Q1

REPORT INFORMATION
  Report Type: Spontaneous
  Country: US (occurrence: US)
  Receive Date: 20140212
  Receipt Date: 20140212
  Transmission Date: 20141002
  Serious: Yes (Other)
  Sender: FDA-Public Use
  Company Number: US-SA-2014SA015492

PATIENT
  Sex: 0

DRUGS (5)
  1. FABRAZYME [Suspect]
     Indication: FABRY^S DISEASE
     Route: 042
  2. ANTIHISTAMINES [Concomitant]
     Indication: PREMEDICATION
  3. H2-RECEPTOR ANTAGONISTS [Concomitant]
     Indication: PREMEDICATION
  4. CORTICOSTEROIDS [Concomitant]
     Indication: PREMEDICATION
  5. RITUXIMAB [Concomitant]

REACTIONS (2)
  - Laryngeal oedema [Unknown]
  - Urticaria [Unknown]
